FAERS Safety Report 25701243 (Version 1)
Quarter: 2025Q3

REPORT INFORMATION
  Report Type: Spontaneous
  Country: US (occurrence: None)
  Receive Date: 20250819
  Receipt Date: 20250819
  Transmission Date: 20251021
  Serious: Yes (Death)
  Sender: FDA-CTU
  Company Number: None

PATIENT
  Age: 65 Year
  Sex: Female

DRUGS (17)
  1. NUCALA [Suspect]
     Active Substance: MEPOLIZUMAB
  2. LAMOTRIGINE [Concomitant]
     Active Substance: LAMOTRIGINE
  3. LEVOTHYROXINE [Concomitant]
     Active Substance: LEVOTHYROXINE
  4. PANTOPRAZOLE SODIUM [Concomitant]
     Active Substance: PANTOPRAZOLE SODIUM
  5. SPIRONOLACTONE [Concomitant]
     Active Substance: SPIRONOLACTONE
  6. TRELEGY 200-62.5 MG INHALER [Concomitant]
  7. INSULIN LISPRO [Concomitant]
     Dosage: FREQUENCY : MONTHLY;?
     Route: 058
     Dates: start: 20250718
  8. Airsupra 90-SOmch inhaler [Concomitant]
  9. ATENOLOL [Concomitant]
     Active Substance: ATENOLOL
  10. ATORVASTATIN [Concomitant]
     Active Substance: ATORVASTATIN
  11. CARVEDILOL [Concomitant]
     Active Substance: CARVEDILOL
  12. Digoxin 0.25mg [Concomitant]
  13. Diltiazem CD 240mg [Concomitant]
  14. DULOXETINE [Concomitant]
     Active Substance: DULOXETINE
  15. GLIMEPIRIDE [Concomitant]
     Active Substance: GLIMEPIRIDE
  16. HYDROCHLOROTHIAZIDE [Concomitant]
     Active Substance: HYDROCHLOROTHIAZIDE
  17. JARDIANCE [Concomitant]
     Active Substance: EMPAGLIFLOZIN

REACTIONS (2)
  - Chronic obstructive pulmonary disease [None]
  - Disease complication [None]

NARRATIVE: CASE EVENT DATE: 20250818
